FAERS Safety Report 12918756 (Version 1)
Quarter: 2016Q4

REPORT INFORMATION
  Report Type: Spontaneous
  Country: US (occurrence: US)
  Receive Date: 20161107
  Receipt Date: 20161107
  Transmission Date: 20170207
  Serious: No
  Sender: FDA-Public Use
  Company Number: US-BAYER-2016-209395

PATIENT
  Age: 77 Year
  Sex: Male
  Weight: 90.7 kg

DRUGS (1)
  1. LOTRIMIN ULTRA [Suspect]
     Active Substance: BUTENAFINE HYDROCHLORIDE
     Dosage: UNK
     Dates: start: 20160901

REACTIONS (1)
  - Rash [Unknown]
